FAERS Safety Report 7904135 (Version 3)
Quarter: 2013Q1

REPORT INFORMATION
  Report Type: Spontaneous
  Country: BR (occurrence: BR)
  Receive Date: 20110419
  Receipt Date: 20130313
  Transmission Date: 20140127
  Serious: Yes (Other)
  Sender: FDA-Public Use
  Company Number: BR-PFIZER INC-2011081466

PATIENT
  Age: 63 Year
  Sex: Female
  Weight: 84 kg

DRUGS (5)
  1. XALATAN [Suspect]
     Indication: GLAUCOMA
     Dosage: ONE DROP EACH EYE (1.5UG EACH EYE) ONCE A DAY
     Dates: start: 2009
  2. LATANOPROST [Suspect]
     Dosage: UNK
     Dates: start: 201206
  3. TENORETIC [Concomitant]
     Indication: HYPERTENSION
     Dosage: UNK
     Dates: start: 200906
  4. FRESH TEARS [Concomitant]
     Indication: PRURITUS
     Dosage: UNK
  5. FRESH TEARS [Concomitant]
     Indication: EYE IRRITATION

REACTIONS (7)
  - Hypersensitivity [Unknown]
  - Erythema [Unknown]
  - Ocular hyperaemia [Not Recovered/Not Resolved]
  - Age-related macular degeneration [Unknown]
  - Neck injury [Unknown]
  - Headache [Unknown]
  - Skin discolouration [Unknown]
